FAERS Safety Report 25344350 (Version 5)
Quarter: 2025Q2

REPORT INFORMATION
  Report Type: Report from Study
  Country: US (occurrence: US)
  Receive Date: 20250521
  Receipt Date: 20250613
  Transmission Date: 20250717
  Serious: Yes (Hospitalization, Other)
  Sender: JOHNSON AND JOHNSON
  Company Number: US-JNJFOC-20250503201

PATIENT
  Age: 63 Year
  Sex: Female

DRUGS (11)
  1. UPTRAVI [Suspect]
     Active Substance: SELEXIPAG
     Indication: Pulmonary arterial hypertension
     Route: 048
     Dates: start: 202504
  2. UPTRAVI [Suspect]
     Active Substance: SELEXIPAG
     Route: 048
  3. UPTRAVI [Suspect]
     Active Substance: SELEXIPAG
     Route: 048
     Dates: start: 202504
  4. TYVASO DPI [Suspect]
     Active Substance: TREPROSTINIL
     Indication: Lung disorder
     Route: 055
  5. TYVASO DPI [Suspect]
     Active Substance: TREPROSTINIL
     Route: 055
     Dates: start: 202504
  6. TYVASO DPI [Suspect]
     Active Substance: TREPROSTINIL
     Dates: start: 202410, end: 202505
  7. OFEV [Suspect]
     Active Substance: NINTEDANIB
     Indication: Product used for unknown indication
     Route: 065
  8. ADCIRCA [Concomitant]
     Active Substance: TADALAFIL
     Indication: Product used for unknown indication
  9. LASIX [Concomitant]
     Active Substance: FUROSEMIDE
     Indication: Product used for unknown indication
  10. TREPROSTINIL SODIUM [Concomitant]
     Active Substance: TREPROSTINIL SODIUM
     Indication: Product used for unknown indication
  11. CALCIUM CARBONATE [Concomitant]
     Active Substance: CALCIUM CARBONATE
     Indication: Product used for unknown indication

REACTIONS (20)
  - Respiratory distress [Unknown]
  - Pulmonary hypertension [Unknown]
  - Hypokalaemia [Recovering/Resolving]
  - Abdominal discomfort [Not Recovered/Not Resolved]
  - Hypoxia [Unknown]
  - Headache [Recovered/Resolved]
  - Fluid retention [Recovering/Resolving]
  - Oxygen saturation decreased [Unknown]
  - Device malfunction [Unknown]
  - Joint swelling [Unknown]
  - Dyspnoea exertional [Not Recovered/Not Resolved]
  - Arthralgia [Not Recovered/Not Resolved]
  - Diarrhoea [Unknown]
  - Dyspnoea [Unknown]
  - Lung disorder [Unknown]
  - Pain in jaw [Unknown]
  - Pain [Unknown]
  - Nausea [Unknown]
  - Dyspepsia [Unknown]
  - Arthritis [Unknown]

NARRATIVE: CASE EVENT DATE: 20250428
